FAERS Safety Report 11835848 (Version 1)
Quarter: 2015Q4

REPORT INFORMATION
  Report Type: Spontaneous
  Country: ES (occurrence: ES)
  Receive Date: 20151215
  Receipt Date: 20151215
  Transmission Date: 20160305
  Serious: Yes (Hospitalization, Other)
  Sender: FDA-Public Use
  Company Number: ES-CELGENE-ESP-2015120030

PATIENT
  Age: 61 Year
  Sex: Male

DRUGS (6)
  1. ABRAXANE [Suspect]
     Active Substance: PACLITAXEL
     Route: 041
  2. GEMCITABINE [Suspect]
     Active Substance: GEMCITABINE\GEMCITABINE HYDROCHLORIDE
     Indication: ADENOCARCINOMA PANCREAS
     Route: 065
     Dates: start: 201504
  3. GEMCITABINE [Suspect]
     Active Substance: GEMCITABINE\GEMCITABINE HYDROCHLORIDE
     Route: 065
  4. ABRAXANE [Suspect]
     Active Substance: PACLITAXEL
     Dosage: 10% DOSE REDUCTION?DAY 15 NOT RECEIVED
     Route: 041
  5. ABRAXANE [Suspect]
     Active Substance: PACLITAXEL
     Indication: ADENOCARCINOMA PANCREAS
     Route: 041
     Dates: start: 201504
  6. GEMCITABINE [Suspect]
     Active Substance: GEMCITABINE\GEMCITABINE HYDROCHLORIDE
     Dosage: 10% DOSE REDUCTION?DAY 15 NOT RECEIVED
     Route: 065

REACTIONS (23)
  - Weight decreased [Recovered/Resolved]
  - Neurotoxicity [Unknown]
  - Pyrexia [Recovered/Resolved]
  - Diarrhoea [Unknown]
  - Decreased appetite [Unknown]
  - Oral candidiasis [Unknown]
  - Pyrexia [Unknown]
  - Asthenia [Unknown]
  - Anaemia [Unknown]
  - Abdominal pain [Unknown]
  - Portal vein thrombosis [Unknown]
  - Hypotension [Unknown]
  - Insomnia [Unknown]
  - Epistaxis [Unknown]
  - Mucosal inflammation [Unknown]
  - Constipation [Unknown]
  - Subdiaphragmatic abscess [Unknown]
  - Neutropenia [Recovering/Resolving]
  - Nausea [Unknown]
  - Alopecia [Unknown]
  - Thrombocytopenia [Recovering/Resolving]
  - Fatigue [Unknown]
  - Dysgeusia [Unknown]

NARRATIVE: CASE EVENT DATE: 201504
